FAERS Safety Report 6045253-1 (Version None)
Quarter: 2009Q1

REPORT INFORMATION
  Report Type: 
  Country: None (occurrence: None)
  Receive Date: 20090121
  Receipt Date: 20090112
  Transmission Date: 20090719
  Serious: Yes (Hospitalization)
  Sender: FDA-Public Use
  Company Number: PHBS2009US00448

PATIENT
  Age: 56 Year
  Sex: Male

DRUGS (15)
  1. CYCLOSPORINE [Suspect]
     Indication: RENAL TRANSPLANT
     Dosage: UNK
     Dates: start: 19960101
  2. CYCLOSPORINE [Interacting]
     Dosage: 75 MG, BID
  3. SIMVASTATIN [Interacting]
  4. RANOLAZINE [Interacting]
  5. CARVEDILOL [Interacting]
     Dosage: UNK
  6. DILTIAZEM [Interacting]
  7. METOPROLOL TARTRATE [Concomitant]
  8. FUROSEMIDE [Concomitant]
  9. TAMSULOSIN HCL [Concomitant]
  10. SERTRALINE [Concomitant]
  11. FLUDROCORTISONE ACETATE [Concomitant]
  12. CLONIDINE [Concomitant]
  13. ESOMEPRAZOLE [Concomitant]
  14. CLOPIDOGREL [Concomitant]
  15. INSULIN GLARGINE [Concomitant]

REACTIONS (4)
  - ASTHENIA [None]
  - DRUG INTERACTION [None]
  - MYALGIA [None]
  - RHABDOMYOLYSIS [None]
